FAERS Safety Report 8977966 (Version 1)
Quarter: 2012Q4

REPORT INFORMATION
  Report Type: 
  Country: US (occurrence: US)
  Receive Date: 20121219
  Receipt Date: 20121219
  Transmission Date: 20130627
  Serious: Yes (Other)
  Sender: FDA-Public Use
  Company Number: US-PFIZER INC-2012320486

PATIENT
  Age: 59 Year
  Sex: Male

DRUGS (4)
  1. DILANTIN [Suspect]
     Dosage: UNK, 3x/day (100, One capsule three times a daily)
  2. KEPPRA [Concomitant]
     Dosage: UNK
  3. LAMICTAL [Concomitant]
     Dosage: UNK
  4. ESCITALOPRAM [Concomitant]
     Dosage: UNK

REACTIONS (2)
  - Convulsion [Unknown]
  - Impaired work ability [Unknown]
